FAERS Safety Report 4949534-1 (Version None)
Quarter: 2006Q1

REPORT INFORMATION
  Report Type: 
  Country: None (occurrence: None)
  Receive Date: 20060316
  Receipt Date: 20060307
  Transmission Date: 20060701
  Serious: Yes (Hospitalization)
  Sender: FDA-Public Use
  Company Number: 2006RL000075

PATIENT
  Age: 70 Year
  Sex: Male

DRUGS (7)
  1. FENOFIBRATE [Suspect]
     Indication: DYSLIPIDAEMIA
     Dosage: 160 MG;PO
     Route: 048
  2. SIMVASTATIN [Suspect]
     Dosage: 40 MG
  3. ATENOLOL [Concomitant]
  4. LEVOTHYROXINE SODIUM [Concomitant]
  5. ROSIGLITAZONE [Concomitant]
  6. RANITIDINE [Concomitant]
  7. TERAZOSIN [Concomitant]

REACTIONS (3)
  - DRUG INTERACTION [None]
  - PROTEINURIA [None]
  - RHABDOMYOLYSIS [None]
